FAERS Safety Report 7588571-8 (Version None)
Quarter: 2011Q3

REPORT INFORMATION
  Report Type: 
  Country: None (occurrence: None)
  Receive Date: 20110705
  Receipt Date: 20110616
  Transmission Date: 20111222
  Serious: No
  Sender: FDA-Public Use
  Company Number: US-B.I. PHARMACEUTICALS,INC./RIDGEFIELD-2011-BP-15634BP

PATIENT
  Sex: Female

DRUGS (5)
  1. PRADAXA [Suspect]
     Indication: ATRIAL FIBRILLATION
     Dosage: 300 MG
     Route: 048
  2. LOPRESSOR [Concomitant]
     Indication: HYPERTENSION
     Route: 048
  3. DIGOXIN [Concomitant]
     Indication: ATRIAL FIBRILLATION
     Dosage: 0.25 MG
     Route: 048
  4. LOTENSIN [Concomitant]
     Indication: HYPERTENSION
     Route: 048
  5. ZANTAC [Concomitant]
     Indication: ABDOMINAL DISCOMFORT
     Dosage: 150 MG
     Route: 048

REACTIONS (2)
  - FEELING ABNORMAL [None]
  - JOINT SWELLING [None]
